FAERS Safety Report 8814054 (Version 2)
Quarter: 2012Q4

REPORT INFORMATION
  Report Type: 
  Country: US (occurrence: US)
  Receive Date: 20120928
  Receipt Date: 20121102
  Transmission Date: 20130627
  Serious: Yes (Other)
  Sender: FDA-Public Use
  Company Number: US-PFIZER INC-2012239994

PATIENT
  Sex: Male

DRUGS (1)
  1. LIPITOR [Suspect]
     Dosage: 80 mg, UNK

REACTIONS (4)
  - Gait disturbance [Unknown]
  - Coordination abnormal [Unknown]
  - Memory impairment [Unknown]
  - Fall [Unknown]
